FAERS Safety Report 9536330 (Version 1)
Quarter: 2013Q2

REPORT INFORMATION
  Report Type: Spontaneous
  Country: US (occurrence: None)
  Receive Date: 20130507
  Receipt Date: 20130507
  Transmission Date: 20140414
  Serious: No
  Sender: FDA-Public Use
  Company Number: PHEH2011US07459

PATIENT
  Age: 7 Year
  Sex: Male

DRUGS (4)
  1. AFINITOR (RAD) [Suspect]
     Indication: TUBEROUS SCLEROSIS
     Route: 048
     Dates: start: 20120204
  2. TEGRETOL (CARBAMAZEPINE) UNKNOWN [Suspect]
  3. SEROQUEL (QUETIAPINE FUMARATE) [Concomitant]
  4. CARBAMAZEPINE (CARBAMAZEPINE) [Concomitant]

REACTIONS (3)
  - Drug level decreased [None]
  - Somnolence [None]
  - Drug interaction [None]
